FAERS Safety Report 7760640-9 (Version None)
Quarter: 2011Q3

REPORT INFORMATION
  Report Type: 
  Country: None (occurrence: None)
  Receive Date: 20110919
  Receipt Date: 20110912
  Transmission Date: 20111222
  Serious: Yes (Other)
  Sender: FDA-Public Use
  Company Number: CA-PFIZER INC-2011156031

PATIENT
  Age: 68 Year
  Sex: Female
  Weight: 67 kg

DRUGS (4)
  1. VITAMIN D [Concomitant]
     Indication: OSTEOARTHRITIS
     Dosage: 1000 MG, 1X/DAY
     Dates: start: 20010101
  2. XALATAN [Suspect]
     Indication: GLAUCOMA
     Dosage: 1 DROP IN BOTH EYES ONCE PER DAY
     Route: 047
     Dates: start: 20110201
  3. SIMVASTATIN [Concomitant]
     Indication: BLOOD CHOLESTEROL INCREASED
     Dosage: 20 MG, 1X/DAY
     Dates: start: 20090101
  4. CALCIUM [Concomitant]
     Indication: OSTEOARTHRITIS
     Dosage: 1000 MG, 1X/DAY
     Dates: start: 20010101

REACTIONS (4)
  - INTRAOCULAR PRESSURE INCREASED [None]
  - EYE IRRITATION [None]
  - DRUG INEFFECTIVE [None]
  - OCULAR HYPERAEMIA [None]
